FAERS Safety Report 6209607-2 (Version None)
Quarter: 2009Q2

REPORT INFORMATION
  Report Type: 
  Country: None (occurrence: None)
  Receive Date: 20090527
  Receipt Date: 20090515
  Transmission Date: 20091009
  Serious: Yes (Death)
  Sender: FDA-Public Use
  Company Number: 20085217

PATIENT
  Sex: Female

DRUGS (2)
  1. LIORESAL [Suspect]
     Indication: MUSCLE SPASTICITY
     Dosage: 999 MCG, DAILY, INTRATHECAL
     Route: 037
  2. ANTIBIOTICS [Concomitant]

REACTIONS (5)
  - CEREBRAL PALSY [None]
  - DISEASE COMPLICATION [None]
  - MEDICAL DEVICE SITE REACTION [None]
  - SKIN DISORDER [None]
  - SUDDEN DEATH [None]
